FAERS Safety Report 8839305 (Version 1)
Quarter: 2012Q4

REPORT INFORMATION
  Report Type: Spontaneous
  Country: US (occurrence: None)
  Receive Date: 20121011
  Receipt Date: 20121011
  Transmission Date: 20130627
  Serious: No
  Sender: FDA-Public Use
  Company Number: None

PATIENT
  Age: 51 Year
  Sex: Female
  Weight: 8.48 kg

DRUGS (1)
  1. SYNTHROID [Suspect]
     Indication: GRAVES^ DISEASE

REACTIONS (2)
  - Product substitution issue [None]
  - Adverse reaction [None]
